FAERS Safety Report 13720255 (Version 2)
Quarter: 2017Q3

REPORT INFORMATION
  Report Type: Report from Study
  Country: None (occurrence: CH)
  Receive Date: 20170706
  Receipt Date: 20170724
  Transmission Date: 20171127
  Serious: Yes (Hospitalization)
  Sender: FDA-Public Use
  Company Number: CH-ABBVIE-17K-151-2029431-00

PATIENT
  Sex: Female

DRUGS (1)
  1. DUODOPA [Suspect]
     Active Substance: CARBIDOPA\LEVODOPA
     Indication: PARKINSON^S DISEASE
     Dosage: MD 6.0ML, CRD 2.3ML/H, CRN 1.0ML/H, ED 0.5ML, 24H THERAPY
     Route: 050
     Dates: start: 20100512

REACTIONS (1)
  - General physical health deterioration [Unknown]
